FAERS Safety Report 7796701-8 (Version None)
Quarter: 2011Q4

REPORT INFORMATION
  Report Type: 
  Country: None (occurrence: None)
  Receive Date: 20111005
  Receipt Date: 20110923
  Transmission Date: 20120403
  Serious: Yes (Other)
  Sender: FDA-Public Use
  Company Number: US-JNJFOC-20110910827

PATIENT
  Sex: Female
  Weight: 65.32 kg

DRUGS (7)
  1. FUROSEMIDE [Concomitant]
     Route: 048
  2. REMICADE [Suspect]
     Route: 042
     Dates: start: 20070101
  3. TRAMADOL HCL [Concomitant]
     Route: 048
  4. REMICADE [Suspect]
     Indication: COLITIS ULCERATIVE
     Route: 042
  5. GEMFIBROZIL [Concomitant]
     Indication: BLOOD TRIGLYCERIDES
     Route: 048
  6. COLAZAL [Concomitant]
     Route: 048
  7. BENTYL [Concomitant]
     Route: 048

REACTIONS (7)
  - PRURITUS GENERALISED [None]
  - ARTHRALGIA [None]
  - NAUSEA [None]
  - MYALGIA [None]
  - FATIGUE [None]
  - THYROID DISORDER [None]
  - INFUSION RELATED REACTION [None]
